FAERS Safety Report 16709662 (Version 1)
Quarter: 2019Q3

REPORT INFORMATION
  Report Type: Spontaneous
  Country: FR (occurrence: FR)
  Receive Date: 20190816
  Receipt Date: 20190816
  Transmission Date: 20191004
  Serious: Yes (Hospitalization, Other)
  Sender: FDA-Public Use
  Company Number: FR-JNJFOC-20190815972

PATIENT
  Age: 60 Year
  Sex: Female

DRUGS (18)
  1. CIRCADIN [Concomitant]
     Active Substance: MELATONIN
     Route: 048
  2. LOVENOX [Concomitant]
     Active Substance: ENOXAPARIN SODIUM
     Route: 058
  3. DIPROSONE                          /00008502/ [Concomitant]
     Active Substance: BETAMETHASONE SODIUM PHOSPHATE
     Route: 003
  4. PREGABALINE [Concomitant]
     Active Substance: PREGABALIN
     Route: 048
  5. SPIRIVA [Concomitant]
     Active Substance: TIOTROPIUM BROMIDE MONOHYDRATE
     Route: 055
  6. NOVORAPID [Concomitant]
     Active Substance: INSULIN ASPART
     Route: 058
  7. NOVATREX (METHOTREXATE) [Suspect]
     Active Substance: METHOTREXATE SODIUM
     Indication: NEUROSARCOIDOSIS
     Route: 042
     Dates: start: 20190329, end: 201906
  8. ACIDE FOLIQUE [Concomitant]
     Active Substance: FOLIC ACID
     Route: 048
  9. MIANSERINE [Concomitant]
     Active Substance: MIANSERIN HYDROCHLORIDE
     Route: 048
  10. PANTOPRAZOLE [Concomitant]
     Active Substance: PANTOPRAZOLE
     Route: 048
  11. NOVATREX (METHOTREXATE) [Suspect]
     Active Substance: METHOTREXATE SODIUM
     Route: 042
  12. CETIRIZINE [Concomitant]
     Active Substance: CETIRIZINE HYDROCHLORIDE
     Route: 048
  13. BEVITINE [Concomitant]
     Active Substance: THIAMINE HYDROCHLORIDE
  14. REMICADE [Suspect]
     Active Substance: INFLIXIMAB
     Indication: NEUROSARCOIDOSIS
     Route: 042
     Dates: start: 20190408, end: 20190408
  15. LEVOTHYROXINE. [Concomitant]
     Active Substance: LEVOTHYROXINE
     Route: 048
  16. CERIS [Concomitant]
     Active Substance: TROSPIUM CHLORIDE
     Route: 048
  17. LANTUS [Concomitant]
     Active Substance: INSULIN GLARGINE
     Route: 058
  18. CORTANCYL [Concomitant]
     Active Substance: PREDNISONE
     Route: 048

REACTIONS (2)
  - Pneumocystis jirovecii pneumonia [Unknown]
  - Atypical mycobacterial pneumonia [Recovered/Resolved]

NARRATIVE: CASE EVENT DATE: 201905
